FAERS Safety Report 18331977 (Version 1)
Quarter: 2020Q3

REPORT INFORMATION
  Report Type: Spontaneous
  Country: US (occurrence: US)
  Receive Date: 20200930
  Receipt Date: 20200930
  Transmission Date: 20201103
  Serious: No
  Sender: FDA-Public Use
  Company Number: NVSC2020US252068

PATIENT
  Age: 1 Year
  Sex: Male
  Weight: 9.3 kg

DRUGS (1)
  1. DABRAFENIB [Suspect]
     Active Substance: DABRAFENIB
     Indication: LANGERHANS^ CELL HISTIOCYTOSIS
     Dosage: 25 MG, BID
     Route: 065

REACTIONS (1)
  - Dysphagia [Unknown]
